FAERS Safety Report 5384680-2 (Version None)
Quarter: 2007Q3

REPORT INFORMATION
  Report Type: 
  Country: None (occurrence: None)
  Receive Date: 20070710
  Receipt Date: 20070425
  Transmission Date: 20080115
  Serious: Yes (Other)
  Sender: FDA-Public Use
  Company Number: 2007-01185

PATIENT
  Age: 70 Year
  Sex: Male
  Weight: 89.3 kg

DRUGS (6)
  1. VELCADE [Suspect]
     Indication: MULTIPLE MYELOMA
     Dosage: 2.60 MG, INTRAVENOUS
     Route: 042
     Dates: start: 20070213
  2. DEXAMETHASONE 0.5MG TAB [Concomitant]
  3. OXYCONTIN [Concomitant]
  4. ALTACE [Concomitant]
  5. SENOKOT [Concomitant]
  6. TOPAMAX [Concomitant]

REACTIONS (2)
  - GENERALISED OEDEMA [None]
  - WEIGHT INCREASED [None]
